FAERS Safety Report 19545376 (Version 1)
Quarter: 2021Q3

REPORT INFORMATION
  Report Type: Spontaneous
  Country: US (occurrence: US)
  Receive Date: 20210713
  Receipt Date: 20210713
  Transmission Date: 20211014
  Serious: Yes (Other)
  Sender: FDA-Public Use
  Company Number: US-ENDO PHARMACEUTICALS INC-2021-003168

PATIENT
  Age: 42 Year
  Sex: Male

DRUGS (6)
  1. RANITIDINE. [Suspect]
     Active Substance: RANITIDINE
     Indication: DYSPEPSIA
     Dosage: 150 MG, DAILY
     Route: 042
     Dates: start: 200601, end: 201101
  2. ZANTAC [Suspect]
     Active Substance: RANITIDINE HYDROCHLORIDE
     Indication: DYSPEPSIA
     Dosage: 75 MG, DAILY
     Route: 042
     Dates: start: 200601, end: 201101
  3. ZANTAC [Suspect]
     Active Substance: RANITIDINE HYDROCHLORIDE
     Dosage: 150 MG, DAILY
     Route: 042
     Dates: start: 200601, end: 201101
  4. ZANTAC [Suspect]
     Active Substance: RANITIDINE HYDROCHLORIDE
     Dosage: 150 MG, DAILY
     Route: 042
     Dates: start: 200601, end: 201101
  5. RANITIDINE HYDROCHLORIDE. [Suspect]
     Active Substance: RANITIDINE HYDROCHLORIDE
     Indication: DYSPEPSIA
     Dosage: 150 MG, DAILY
     Route: 042
     Dates: start: 200601, end: 201101
  6. ZANTAC [Suspect]
     Active Substance: RANITIDINE HYDROCHLORIDE
     Indication: DYSPEPSIA
     Dosage: 75 MG, DAILY
     Route: 042
     Dates: start: 200601, end: 201101

REACTIONS (1)
  - Bladder cancer stage I, with cancer in situ [Recovered/Resolved]

NARRATIVE: CASE EVENT DATE: 20190101
